FAERS Safety Report 8617748-5 (Version None)
Quarter: 2012Q3

REPORT INFORMATION
  Report Type: 
  Country: None (occurrence: None)
  Receive Date: 20120824
  Receipt Date: 20120410
  Transmission Date: 20120928
  Serious: No
  Sender: FDA-Public Use
  Company Number: CN-ASTRAZENECA-2011SE77283

PATIENT
  Age: 54 Year
  Sex: Female

DRUGS (3)
  1. SEROQUEL [Suspect]
     Indication: DEPRESSION
     Route: 048
  2. SYMBICORT [Suspect]
     Route: 055
  3. TOPROL-XL [Suspect]
     Route: 048

REACTIONS (2)
  - HEADACHE [None]
  - PAIN IN EXTREMITY [None]
